FAERS Safety Report 21132971 (Version 2)
Quarter: 2022Q4

REPORT INFORMATION
  Report Type: Spontaneous
  Country: US (occurrence: US)
  Receive Date: 20220726
  Receipt Date: 20221005
  Transmission Date: 20230113
  Serious: Yes (Other)
  Sender: FDA-Public Use
  Company Number: US-AMERICAN REGENT INC-2022002105

PATIENT
  Age: 43 Year
  Sex: Female
  Weight: 75.5 kg

DRUGS (6)
  1. VENOFER [Suspect]
     Active Substance: IRON SUCROSE
     Indication: Nephrogenic anaemia
     Dosage: 100 MILLIGRAM GIVEN OVER A PERIOD OF 2 TO 3 MINUTES
     Dates: start: 20220602, end: 20220602
  2. VENOFER [Suspect]
     Active Substance: IRON SUCROSE
     Dosage: 100 MILLIGRAM GIVEN OVER A PERIOD OF 2 TO 3 MINUTES
     Dates: start: 20220607, end: 20220607
  3. VENOFER [Suspect]
     Active Substance: IRON SUCROSE
     Dosage: 100 MILLIGRAM GIVEN OVER A PERIOD OF 2 TO 3 MINUTES
     Dates: start: 20220623, end: 20220623
  4. MIRCERA [Suspect]
     Active Substance: METHOXY POLYETHYLENE GLYCOL-EPOETIN BETA
     Indication: Nephrogenic anaemia
     Dosage: UNSPECIFIED DOSE (LOWER THAN 225 MCG) ONCE EVERY 2 WEEKS
     Dates: start: 20220514
  5. MIRCERA [Suspect]
     Active Substance: METHOXY POLYETHYLENE GLYCOL-EPOETIN BETA
     Dosage: 225 MCG ONCE EVERY 2 WEEKS (DOSE CATEGORY: 04)
     Dates: start: 20220611, end: 20220611
  6. HECTOROL [Concomitant]
     Active Substance: DOXERCALCIFEROL
     Indication: Product used for unknown indication
     Dosage: UNK
     Route: 065

REACTIONS (1)
  - Drug hypersensitivity [Recovered/Resolved]

NARRATIVE: CASE EVENT DATE: 20220611
